FAERS Safety Report 8428703-2 (Version None)
Quarter: 2012Q2

REPORT INFORMATION
  Report Type: 
  Country: None (occurrence: None)
  Receive Date: 20120606
  Receipt Date: 20120522
  Transmission Date: 20120825
  Serious: Yes (Death)
  Sender: FDA-Public Use
  Company Number: TCI2012A02640

PATIENT

DRUGS (1)
  1. ROZEREM TABLETS 8 MG (RAMELTON) [Suspect]
     Indication: SLEEP PHASE RHYTHM DISTURBANCE
     Dosage: 8 MG (8 MG, 1 IN 1 D), PER ORAL
     Route: 048
     Dates: start: 20120501, end: 20120522

REACTIONS (1)
  - RESPIRATORY DEPRESSION [None]
